FAERS Safety Report 19041009 (Version 1)
Quarter: 2021Q1

REPORT INFORMATION
  Report Type: Report from Study
  Country: US (occurrence: US)
  Receive Date: 20210322
  Receipt Date: 20210322
  Transmission Date: 20210420
  Serious: Yes (Other)
  Sender: FDA-Public Use
  Company Number: US-BAXALTA-2016BLT006315

PATIENT
  Sex: Female

DRUGS (1)
  1. HUMAN IMMUNOGLOBULIN; HYALURONIDASE [Suspect]
     Active Substance: HUMAN IMMUNOGLOBULIN G\HYALURONIDASE RECOMBINANT HUMAN
     Indication: IMMUNODEFICIENCY COMMON VARIABLE
     Dosage: 300 ML, 1X A MONTH
     Route: 058

REACTIONS (5)
  - COVID-19 [Recovering/Resolving]
  - Fungal infection [Unknown]
  - Peripheral swelling [Unknown]
  - Infusion site swelling [Unknown]
  - Bacterial infection [Unknown]
